FAERS Safety Report 11940969 (Version 4)
Quarter: 2016Q3

REPORT INFORMATION
  Report Type: Spontaneous
  Country: BR (occurrence: BR)
  Receive Date: 20160122
  Receipt Date: 20160704
  Transmission Date: 20161109
  Serious: Yes (Hospitalization)
  Sender: FDA-Public Use
  Company Number: BR-PFIZER INC-2016024010

PATIENT
  Age: 45 Year
  Sex: Male
  Weight: 53 kg

DRUGS (6)
  1. NYSTATIN. [Concomitant]
     Active Substance: NYSTATIN
     Indication: WOUND
  2. SUTENT [Suspect]
     Active Substance: SUNITINIB MALATE
     Indication: METASTATIC RENAL CELL CARCINOMA
     Dosage: 50 MG, ONCE A DAY CYCLIC 4X2 (SING 28 DAYS, PAUSING 14)
     Route: 048
     Dates: start: 201508
  3. DECADRON [Concomitant]
     Active Substance: DEXAMETHASONE
     Dosage: 4MG/DAY
     Dates: start: 201508
  4. SIMVASTATIN. [Concomitant]
     Active Substance: SIMVASTATIN
     Indication: BLOOD CHOLESTEROL
     Dosage: 1 TABLET AT NIGHT
     Dates: start: 201602
  5. SUTENT [Suspect]
     Active Substance: SUNITINIB MALATE
     Indication: NEOPLASM MALIGNANT
  6. OMEPRAZOLE. [Concomitant]
     Active Substance: OMEPRAZOLE
     Dosage: UNK
     Dates: start: 201508

REACTIONS (19)
  - Blood potassium decreased [Recovered/Resolved]
  - Mouth injury [Recovered/Resolved]
  - Nausea [Recovered/Resolved]
  - Tympanic membrane perforation [Not Recovered/Not Resolved]
  - Haemoglobin decreased [Recovered/Resolved]
  - Skin discolouration [Recovered/Resolved]
  - Metastatic renal cell carcinoma [Unknown]
  - Epistaxis [Not Recovered/Not Resolved]
  - Disease progression [Unknown]
  - Eating disorder [Not Recovered/Not Resolved]
  - Asthenia [Not Recovered/Not Resolved]
  - Fall [Recovered/Resolved]
  - Blood sodium decreased [Recovered/Resolved]
  - Vomiting [Recovered/Resolved]
  - Weight decreased [Unknown]
  - Gastrooesophageal reflux disease [Not Recovered/Not Resolved]
  - Feeling abnormal [Recovered/Resolved]
  - Blood zinc decreased [Recovered/Resolved]
  - Ear infection [Not Recovered/Not Resolved]

NARRATIVE: CASE EVENT DATE: 20160413
